FAERS Safety Report 4723568-4 (Version None)
Quarter: 2005Q3

REPORT INFORMATION
  Report Type: 
  Country: None (occurrence: None)
  Receive Date: 20050725
  Receipt Date: 20050602
  Transmission Date: 20060218
  Serious: Yes (Life-Threatening, Hospitalization, Other)
  Sender: FDA-Public Use
  Company Number: US-MERCK-0506USA00602

PATIENT
  Age: 71 Year
  Sex: Female

DRUGS (4)
  1. VIOXX [Suspect]
     Indication: ARTHRITIS
     Route: 048
     Dates: start: 19970101, end: 20050101
  2. VIOXX [Suspect]
     Indication: OSTEOARTHRITIS
     Route: 048
     Dates: start: 19970101, end: 20050101
  3. ESTROGENS (UNSPECIFIED) [Concomitant]
     Route: 061
     Dates: start: 19610101
  4. NONSTEROIDAL ANTI-INFLAMMATORY DRUG (UNSPECIFIED) [Concomitant]
     Route: 065

REACTIONS (10)
  - AMNESIA [None]
  - ATROPHY [None]
  - EAR DISCOMFORT [None]
  - GASTROOESOPHAGEAL REFLUX DISEASE [None]
  - MITRAL VALVE PROLAPSE [None]
  - RENAL DISORDER [None]
  - RENAL FAILURE CHRONIC [None]
  - RENAL INJURY [None]
  - URINARY INCONTINENCE [None]
  - URINARY TRACT INFECTION [None]
